FAERS Safety Report 7475616-9 (Version None)
Quarter: 2011Q2

REPORT INFORMATION
  Report Type: 
  Country: None (occurrence: None)
  Receive Date: 20110512
  Receipt Date: 20110504
  Transmission Date: 20111010
  Serious: Yes (Other)
  Sender: FDA-Public Use
  Company Number: GB-PFIZER INC-2008044046

PATIENT
  Age: 24 Month
  Sex: Male

DRUGS (5)
  1. METHOTREXATE [Suspect]
     Indication: JUVENILE ARTHRITIS
     Dosage: EVERY WEEK
     Route: 058
     Dates: start: 20030801, end: 20040129
  2. IRON [Concomitant]
     Dates: start: 20040801
  3. TRIAMCINOLONE [Concomitant]
     Dates: start: 20040201
  4. IBUPROFEN [Suspect]
     Indication: JUVENILE ARTHRITIS
     Dosage: EVERY DAY
     Route: 048
     Dates: start: 20040101
  5. PIROXICAM [Suspect]
     Indication: JUVENILE ARTHRITIS
     Route: 048
     Dates: start: 20040101

REACTIONS (3)
  - ALANINE AMINOTRANSFERASE INCREASED [None]
  - MUSCULOSKELETAL STIFFNESS [None]
  - SPONDYLITIS [None]
